FAERS Safety Report 20424222 (Version 1)
Quarter: 2022Q1

REPORT INFORMATION
  Report Type: Spontaneous
  Country: JP (occurrence: JP)
  Receive Date: 20220203
  Receipt Date: 20220203
  Transmission Date: 20220424
  Serious: Yes (Hospitalization, Other)
  Sender: FDA-Public Use
  Company Number: JP-TAKEDA-2021TJP023140

PATIENT
  Sex: Male

DRUGS (1)
  1. CABOMETYX [Suspect]
     Active Substance: CABOZANTINIB S-MALATE
     Indication: Renal cell carcinoma
     Dosage: 60 MG
     Route: 048
     Dates: start: 20210412, end: 20210510

REACTIONS (1)
  - Hypothyroidism [Recovered/Resolved]

NARRATIVE: CASE EVENT DATE: 20210501
